FAERS Safety Report 4718554-4 (Version None)
Quarter: 2005Q3

REPORT INFORMATION
  Report Type: 
  Country: None (occurrence: None)
  Receive Date: 20050720
  Receipt Date: 20050712
  Transmission Date: 20060218
  Serious: Yes (Disabling)
  Sender: FDA-Public Use
  Company Number: 200516378GDDC

PATIENT
  Age: 39 Year
  Sex: Male

DRUGS (1)
  1. RIFAMPIN [Suspect]
     Indication: SYSTEMIC ANTIBACTERIAL THERAPY
     Route: 048
     Dates: start: 20050512

REACTIONS (2)
  - DEAFNESS [None]
  - OTOTOXICITY [None]
